FAERS Safety Report 23083594 (Version 2)
Quarter: 2023Q4

REPORT INFORMATION
  Report Type: Report from Study
  Country: JP (occurrence: JP)
  Receive Date: 20231019
  Receipt Date: 20231101
  Transmission Date: 20240109
  Serious: Yes (Death, Hospitalization)
  Sender: FDA-Public Use
  Company Number: JP-SERVIER-S21012293

PATIENT
  Age: 82 Year
  Sex: Male
  Weight: 47.7 kg

DRUGS (3)
  1. ONIVYDE [Suspect]
     Active Substance: IRINOTECAN HYDROCHLORIDE
     Indication: Pancreatic carcinoma
     Dosage: 70 MG/M2
     Route: 042
     Dates: start: 20211019, end: 20211019
  2. FLUOROURACIL [Concomitant]
     Active Substance: FLUOROURACIL
     Indication: Pancreatic carcinoma
     Dosage: 2400 MG/M2
     Route: 042
     Dates: start: 20211019, end: 20211021
  3. LEVOLEUCOVORIN CALCIUM [Concomitant]
     Active Substance: LEVOLEUCOVORIN CALCIUM
     Indication: Pancreatic carcinoma
     Dosage: 200 MG/M2
     Route: 042
     Dates: start: 20211019, end: 20211019

REACTIONS (3)
  - Malignant neoplasm progression [Fatal]
  - Pneumonia aspiration [Recovered/Resolved]
  - Pneumonia aspiration [Recovering/Resolving]

NARRATIVE: CASE EVENT DATE: 20210101
